FAERS Safety Report 9563206 (Version 1)
Quarter: 2013Q3

REPORT INFORMATION
  Report Type: Spontaneous
  Country: US (occurrence: US)
  Receive Date: 20130927
  Receipt Date: 20130927
  Transmission Date: 20140515
  Serious: No
  Sender: FDA-Public Use
  Company Number: US-BRISTOL-MYERS SQUIBB COMPANY-19010982

PATIENT
  Age: 65 Year
  Sex: Female
  Weight: 81.18 kg

DRUGS (10)
  1. ONGLYZA TABS 5 MG [Suspect]
     Indication: TYPE 2 DIABETES MELLITUS
  2. HYDROCODONE [Concomitant]
     Indication: PAIN MANAGEMENT
  3. POTASSIUM [Concomitant]
  4. PRAVASTATIN SODIUM [Concomitant]
  5. NEURONTIN [Concomitant]
  6. NIFEDIPINE [Concomitant]
  7. ATENOLOL [Concomitant]
  8. PROCARDIA [Concomitant]
  9. LOSARTAN [Concomitant]
  10. ALBUTEROL [Concomitant]

REACTIONS (2)
  - Drug dose omission [Unknown]
  - Blood glucose fluctuation [Unknown]
